FAERS Safety Report 21337262 (Version 2)
Quarter: 2022Q4

REPORT INFORMATION
  Report Type: Spontaneous
  Country: JP (occurrence: JP)
  Receive Date: 20220915
  Receipt Date: 20221021
  Transmission Date: 20230112
  Serious: Yes (Death, Hospitalization)
  Sender: FDA-Public Use
  Company Number: JP-BAYER-2022A124408

PATIENT
  Age: 80 Year
  Sex: Male

DRUGS (10)
  1. KERENDIA [Suspect]
     Active Substance: FINERENONE
     Indication: Type 2 diabetes mellitus
     Dosage: DAILY DOSE 10 MG
     Route: 048
     Dates: start: 2022
  2. KERENDIA [Suspect]
     Active Substance: FINERENONE
     Indication: Chronic kidney disease
  3. TENELIA OD [Concomitant]
     Indication: Type 2 diabetes mellitus
     Dosage: DAILY DOSE 20 MG
     Route: 048
     Dates: start: 20210710
  4. CILNIDIPINE [Concomitant]
     Active Substance: CILNIDIPINE
     Indication: Hypertension
     Dosage: DAILY DOSE 10 MG
     Route: 048
     Dates: start: 20220404
  5. DIOVAN [Concomitant]
     Active Substance: VALSARTAN
     Indication: Hypertension
     Dosage: DAILY DOSE 80 MG
     Route: 048
     Dates: start: 20220627
  6. METILDIGOXIN [Concomitant]
     Active Substance: METILDIGOXIN
     Indication: Cardiac failure chronic
     Dosage: DAILY DOSE 0.1 MG
     Route: 048
     Dates: start: 20101020
  7. AZOSEMIDE [Concomitant]
     Active Substance: AZOSEMIDE
     Indication: Cardiac failure chronic
     Dosage: DAILY DOSE 30 MG
     Route: 048
     Dates: start: 20210915
  8. PRAVASTATIN SODIUM [Concomitant]
     Active Substance: PRAVASTATIN SODIUM
     Indication: Dyslipidaemia
     Dosage: DAILY DOSE 10 MG
     Route: 048
     Dates: start: 20120727
  9. PEMAFIBRATE [Concomitant]
     Active Substance: PEMAFIBRATE
     Indication: Dyslipidaemia
     Dosage: DAILY DOSE 0.2 MG
     Route: 048
     Dates: start: 20220613
  10. TOPIROXOSTAT [Concomitant]
     Active Substance: TOPIROXOSTAT
     Indication: Hyperuricaemia
     Dosage: DAILY DOSE 40MG
     Route: 048
     Dates: start: 20190522

REACTIONS (2)
  - Pancreatitis acute [Fatal]
  - Abdominal pain [Fatal]

NARRATIVE: CASE EVENT DATE: 20220829
